FAERS Safety Report 5380593-0 (Version None)
Quarter: 2007Q2

REPORT INFORMATION
  Report Type: 
  Country: None (occurrence: None)
  Receive Date: 20070530
  Receipt Date: 20070304
  Transmission Date: 20071010
  Serious: No
  Sender: FDA-Public Use
  Company Number: 2007PV031009

PATIENT
  Age: 59 Year
  Sex: Female
  Weight: 74.8435 kg

DRUGS (3)
  1. BYETTA [Suspect]
     Indication: DIABETES MELLITUS NON-INSULIN-DEPENDENT
     Dosage: 10 MCG;BID;SC
     Route: 058
     Dates: start: 20060101
  2. GLUCOPAGE ^BRISTOL-MYERS SQUIBB^ [Concomitant]
  3. GLIPIZIDE [Concomitant]

REACTIONS (2)
  - INJECTION SITE PAIN [None]
  - VARICOSE VEIN [None]
